FAERS Safety Report 21760954 (Version 2)
Quarter: 2022Q4

REPORT INFORMATION
  Report Type: Report from Study
  Country: US (occurrence: US)
  Receive Date: 20221221
  Receipt Date: 20221222
  Transmission Date: 20230112
  Serious: No
  Sender: FDA-Public Use
  Company Number: US-ABBVIE-22K-163-4403051-00

PATIENT
  Sex: Female

DRUGS (1)
  1. IMBRUVICA [Suspect]
     Active Substance: IBRUTINIB
     Indication: Lymphocytic leukaemia
     Route: 048
     Dates: start: 201906

REACTIONS (10)
  - Neuropathy peripheral [Unknown]
  - Radiation retinopathy [Unknown]
  - White blood cell count decreased [Unknown]
  - Urinary tract infection [Unknown]
  - Fatigue [Unknown]
  - Throat irritation [Unknown]
  - Pharyngitis streptococcal [Unknown]
  - Respiratory tract congestion [Unknown]
  - Loss of personal independence in daily activities [Unknown]
  - Platelet count decreased [Unknown]
